FAERS Safety Report 6768246-5 (Version None)
Quarter: 2010Q2

REPORT INFORMATION
  Report Type: 
  Country: None (occurrence: None)
  Receive Date: 20100614
  Receipt Date: 20100610
  Transmission Date: 20101027
  Serious: Yes (Death)
  Sender: FDA-Public Use
  Company Number: PH-ASTRAZENECA-2010SE26902

PATIENT
  Age: 81 Year
  Sex: Male

DRUGS (3)
  1. MERONEM [Suspect]
     Indication: PNEUMONIA
     Dosage: 1 G Q12 HOURS FOR 3 HOURS
     Route: 042
     Dates: start: 20100603, end: 20100607
  2. DOBUTAMINE HCL [Concomitant]
  3. RANITIDINE [Concomitant]

REACTIONS (1)
  - GENERAL PHYSICAL HEALTH DETERIORATION [None]
